FAERS Safety Report 4850694-1 (Version None)
Quarter: 2005Q4

REPORT INFORMATION
  Report Type: 
  Country: None (occurrence: None)
  Receive Date: 20051212
  Receipt Date: 20051201
  Transmission Date: 20060501
  Serious: Yes (Other)
  Sender: FDA-Public Use
  Company Number: US-JNJFOC-20051200926

PATIENT
  Sex: Female
  Weight: 77.11 kg

DRUGS (9)
  1. INFLIXIMAB [Suspect]
     Indication: RHEUMATOID ARTHRITIS
     Route: 042
     Dates: start: 20020702, end: 20030212
  2. METHOTREXATE [Concomitant]
  3. FOLIC ACID [Concomitant]
  4. SYNTHROID [Concomitant]
  5. ULTRAM [Concomitant]
     Dosage: 3 DOSES = 3 TABLETS
  6. PRAVACHOL [Concomitant]
  7. LEXAPRO [Concomitant]
  8. HUMIRA [Concomitant]
  9. SANCTURA [Concomitant]

REACTIONS (1)
  - BASAL CELL CARCINOMA [None]
